FAERS Safety Report 4873498-2 (Version None)
Quarter: 2005Q4

REPORT INFORMATION
  Report Type: 
  Country: None (occurrence: None)
  Receive Date: 20051201
  Receipt Date: 20050818
  Transmission Date: 20060501
  Serious: No
  Sender: FDA-Public Use
  Company Number: 2005PV001414

PATIENT
  Sex: Female

DRUGS (3)
  1. BYETTA [Suspect]
     Indication: DIABETES MELLITUS NON-INSULIN-DEPENDENT
     Dosage: 10 MCG; BID; 5 MCG : SC
     Route: 058
     Dates: end: 20050811
  2. BYETTA [Suspect]
     Indication: DIABETES MELLITUS NON-INSULIN-DEPENDENT
     Dosage: 10 MCG; BID; 5 MCG : SC
     Route: 058
     Dates: start: 20050812
  3. GLUCOVANCE [Concomitant]

REACTIONS (1)
  - BLOOD GLUCOSE INCREASED [None]
